FAERS Safety Report 10599224 (Version 1)
Quarter: 2014Q4

REPORT INFORMATION
  Report Type: Spontaneous
  Country: US (occurrence: US)
  Receive Date: 20141121
  Receipt Date: 20141121
  Transmission Date: 20150529
  Serious: No
  Sender: FDA-Public Use
  Company Number: US-ELI_LILLY_AND_COMPANY-US201411007920

PATIENT
  Sex: Female

DRUGS (2)
  1. FORTEO [Suspect]
     Active Substance: TERIPARATIDE
     Indication: OSTEOPOROSIS
     Dosage: UNK, QD
     Dates: start: 201409
  2. FORTEO [Suspect]
     Active Substance: TERIPARATIDE
     Dosage: UNK, QD

REACTIONS (3)
  - Swelling [Recovered/Resolved]
  - Abdominal discomfort [Recovered/Resolved]
  - Malaise [Recovered/Resolved]
